FAERS Safety Report 14529198 (Version 1)
Quarter: 2018Q1

REPORT INFORMATION
  Report Type: Spontaneous
  Country: US (occurrence: US)
  Receive Date: 20180213
  Receipt Date: 20180213
  Transmission Date: 20180509
  Serious: No
  Sender: FDA-Public Use
  Company Number: None

PATIENT
  Age: 78 Year
  Sex: Male

DRUGS (1)
  1. VOTRIENT [Suspect]
     Active Substance: PAZOPANIB HYDROCHLORIDE
     Dosage: FREQUENCY QHS
     Route: 048

REACTIONS (5)
  - Speech disorder [None]
  - Weight increased [None]
  - Swollen tongue [None]
  - Oedema [None]
  - Dysphagia [None]

NARRATIVE: CASE EVENT DATE: 20180210
